FAERS Safety Report 9942337 (Version 2)
Quarter: 2014Q1

REPORT INFORMATION
  Report Type: Spontaneous
  Country: IT (occurrence: IT)
  Receive Date: 20140303
  Receipt Date: 20140311
  Transmission Date: 20141002
  Serious: Yes (Life-Threatening)
  Sender: FDA-Public Use
  Company Number: IT-TEVA-465747ISR

PATIENT
  Age: 74 Year
  Sex: Female
  Weight: 90 kg

DRUGS (2)
  1. CARBOLITHIUM [Suspect]
     Indication: BIPOLAR DISORDER
     Dosage: 750 MILLIGRAM DAILY;
     Route: 048
     Dates: start: 19900101, end: 20140221
  2. CARBOLITHIUM [Suspect]
     Dosage: 450 MILLIGRAM DAILY; RESTARTED. DOSAGE REDUCED TO 450 MG/DAY
     Route: 048

REACTIONS (2)
  - Toxicity to various agents [Recovered/Resolved]
  - Sopor [Recovered/Resolved]
